FAERS Safety Report 5825274-1 (Version None)
Quarter: 2008Q3

REPORT INFORMATION
  Report Type: 
  Country: None (occurrence: None)
  Receive Date: 20080722
  Receipt Date: 20070830
  Transmission Date: 20090109
  Serious: Yes (Hospitalization)
  Sender: FDA-Public Use
  Company Number: 2007BI018535

PATIENT
  Age: 50 Year
  Sex: Male

DRUGS (2)
  1. AVONEX [Suspect]
     Indication: MULTIPLE SCLEROSIS
     Dosage: 7.5 UG;QW;IM ; 30 UG;QW;IM
     Route: 030
     Dates: end: 20071001
  2. AVONEX [Suspect]
     Indication: MULTIPLE SCLEROSIS
     Dosage: 7.5 UG;QW;IM ; 30 UG;QW;IM
     Route: 030
     Dates: start: 20070314

REACTIONS (1)
  - STAPHYLOCOCCAL INFECTION [None]
